FAERS Safety Report 18774438 (Version 3)
Quarter: 2022Q2

REPORT INFORMATION
  Report Type: Spontaneous
  Country: US (occurrence: US)
  Receive Date: 20210122
  Receipt Date: 20220503
  Transmission Date: 20220720
  Serious: No
  Sender: FDA-Public Use
  Company Number: US-AMGEN-USASP2021009029

PATIENT
  Age: 73 Year
  Sex: Female

DRUGS (2)
  1. PROLIA [Suspect]
     Active Substance: DENOSUMAB
     Indication: Bone loss
     Dosage: 60 MILLIGRAM/MILLIGRAM, Q6MO
     Route: 058
     Dates: start: 2018
  2. PROLIA [Suspect]
     Active Substance: DENOSUMAB
     Indication: Osteoporosis

REACTIONS (4)
  - Back pain [Unknown]
  - Myalgia [Not Recovered/Not Resolved]
  - Arthralgia [Not Recovered/Not Resolved]
  - Bone pain [Not Recovered/Not Resolved]

NARRATIVE: CASE EVENT DATE: 20180101
